FAERS Safety Report 4351008-6 (Version None)
Quarter: 2004Q2

REPORT INFORMATION
  Report Type: 
  Country: None (occurrence: None)
  Receive Date: 20040428
  Receipt Date: 20020812
  Transmission Date: 20050107
  Serious: Yes (Death, Other)
  Sender: FDA-Public Use
  Company Number: C-04-0006

PATIENT
  Sex: Female
  Weight: 17.6903 kg

DRUGS (1)
  1. PROMETHAZINE [Suspect]
     Dosage: ORAL, DOSE AND FREQUENCY
     Dates: start: 20020325

REACTIONS (2)
  - LEGAL PROBLEM [None]
  - PHARMACEUTICAL PRODUCT COMPLAINT [None]
